FAERS Safety Report 17646335 (Version 1)
Quarter: 2020Q2

REPORT INFORMATION
  Report Type: Report from Study
  Country: None (occurrence: BE)
  Receive Date: 20200408
  Receipt Date: 20200408
  Transmission Date: 20200713
  Serious: Yes (Hospitalization)
  Sender: FDA-Public Use
  Company Number: BE-ABBVIE-20K-013-3355457-00

PATIENT
  Sex: Male
  Weight: 81 kg

DRUGS (13)
  1. DUODOPA [Suspect]
     Active Substance: CARBIDOPA\LEVODOPA
     Indication: PARKINSON^S DISEASE
     Dosage: UNKNOWN DOSAGES
     Route: 050
     Dates: start: 20161012, end: 20190101
  2. SERLAIN [Concomitant]
     Active Substance: SERTRALINE HYDROCHLORIDE
     Indication: PARKINSON^S DISEASE
  3. DUODOPA [Suspect]
     Active Substance: CARBIDOPA\LEVODOPA
     Dosage: MD=4.5ML, CD=3.8ML/HR DURING 16HRS, ED=1.5ML
     Route: 050
     Dates: start: 20190101, end: 20190129
  4. DUODOPA [Suspect]
     Active Substance: CARBIDOPA\LEVODOPA
     Dosage: MD=5.0ML, CD=4.2ML/HR DURING 16HRS, ED=1.5ML
     Route: 050
     Dates: start: 20191010
  5. AZILECT [Concomitant]
     Active Substance: RASAGILINE MESYLATE
     Indication: PARKINSON^S DISEASE
     Route: 048
  6. MIRAPEXIN [Concomitant]
     Active Substance: PRAMIPEXOLE
     Indication: PARKINSON^S DISEASE
     Route: 048
  7. ASAFLOW [Concomitant]
     Active Substance: ASPIRIN
     Indication: PRODUCT USED FOR UNKNOWN INDICATION
  8. BETASERC [Concomitant]
     Active Substance: BETAHISTINE
     Indication: PRODUCT USED FOR UNKNOWN INDICATION
  9. DUODOPA [Suspect]
     Active Substance: CARBIDOPA\LEVODOPA
     Dosage: DOSES CONTINUOUSLY MONITORED AND ADAPTED
     Route: 050
     Dates: start: 20190129, end: 20191010
  10. AZILECT [Concomitant]
     Active Substance: RASAGILINE MESYLATE
  11. MIRAPEXIN [Concomitant]
     Active Substance: PRAMIPEXOLE
     Route: 048
  12. SERLAIN [Concomitant]
     Active Substance: SERTRALINE HYDROCHLORIDE
  13. MIRAPEXIN [Concomitant]
     Active Substance: PRAMIPEXOLE

REACTIONS (2)
  - Coronavirus infection [Unknown]
  - Pyrexia [Recovering/Resolving]
